FAERS Safety Report 7589894-9 (Version None)
Quarter: 2011Q3

REPORT INFORMATION
  Report Type: 
  Country: None (occurrence: None)
  Receive Date: 20110705
  Receipt Date: 20110628
  Transmission Date: 20111222
  Serious: Yes (Hospitalization)
  Sender: FDA-Public Use
  Company Number: GB-ROCHE-756489

PATIENT
  Age: 40 Year
  Sex: Female
  Weight: 101 kg

DRUGS (10)
  1. ACYCLOVIR [Concomitant]
     Route: 048
  2. CITALOPRAM HYDROBROMIDE [Concomitant]
  3. LANSOPRAZOLE [Concomitant]
     Route: 048
  4. RITUXIMAB [Suspect]
     Route: 042
     Dates: start: 20080701
  5. PREDNISOLONE [Suspect]
     Route: 048
  6. RITUXIMAB [Suspect]
     Route: 042
     Dates: start: 20080801
  7. CALCICHEW [Concomitant]
     Dosage: CALCICHEW D3
     Route: 048
  8. FOLIC ACID [Concomitant]
     Route: 048
  9. MYCOPHENOLATE MEFETIL [Suspect]
     Route: 048
  10. SIMVASTATIN [Concomitant]
     Route: 048

REACTIONS (1)
  - PNEUMOCYSTIS JIROVECI INFECTION [None]
